FAERS Safety Report 24777435 (Version 2)
Quarter: 2025Q1

REPORT INFORMATION
  Report Type: Spontaneous
  Country: US (occurrence: US)
  Receive Date: 20241226
  Receipt Date: 20250203
  Transmission Date: 20250409
  Serious: Yes (Death, Hospitalization)
  Sender: PFIZER
  Company Number: US-PFIZER INC-202400332480

PATIENT
  Age: 93 Year
  Sex: Male
  Weight: 63.492 kg

DRUGS (3)
  1. VYNDAMAX [Suspect]
     Active Substance: TAFAMIDIS
     Indication: Amyloidosis
     Dosage: 61 MG, 1X/DAY
     Route: 048
     Dates: end: 20241217
  2. ELIQUIS [Concomitant]
     Active Substance: APIXABAN
     Indication: Anticoagulant therapy
     Dosage: 2.5 MG, 2X/DAY
  3. BUMEX [Concomitant]
     Active Substance: BUMETANIDE
     Indication: Oedema
     Dosage: 2 MG, 2X/DAY

REACTIONS (1)
  - Death [Fatal]

NARRATIVE: CASE EVENT DATE: 20241219
